FAERS Safety Report 15500372 (Version 3)
Quarter: 2018Q4

REPORT INFORMATION
  Report Type: Spontaneous
  Country: TR (occurrence: TR)
  Receive Date: 20181015
  Receipt Date: 20181121
  Transmission Date: 20190205
  Serious: Yes (Other)
  Sender: FDA-Public Use
  Company Number: PHHY2018TR125622

PATIENT
  Age: 39 Year
  Sex: Male

DRUGS (1)
  1. SANDIMMUN NEORAL [Suspect]
     Active Substance: CYCLOSPORINE
     Indication: TRANSPLANT
     Dosage: 1 DF, BID
     Route: 048

REACTIONS (4)
  - Treatment failure [Unknown]
  - Immune system disorder [Unknown]
  - Product physical issue [Unknown]
  - Drug ineffective [Unknown]
